FAERS Safety Report 5927289-1 (Version None)
Quarter: 2008Q4

REPORT INFORMATION
  Report Type: 
  Country: None (occurrence: None)
  Receive Date: 20081017
  Receipt Date: 20081008
  Transmission Date: 20090506
  Serious: Yes (Other)
  Sender: FDA-Public Use
  Company Number: 2008JP004888

PATIENT
  Age: 54 Year

DRUGS (5)
  1. PROGRAF [Suspect]
     Indication: BONE MARROW TRANSPLANT
     Dosage: 1.2 MG, UNKNOWN/D, ORAL
     Route: 048
  2. BORTEZOMIB (BORTEZOMIB) FORMULATION UNKNOWN [Suspect]
     Dosage: 1.3 MG/M2, UNKNOWN/D
     Dates: start: 20071101
  3. METHYLPREDNISOLONE (METHYLPREDNISOLONE) INJECTION [Suspect]
     Dosage: 1000 MG, UNKNOWN/D, IV NOS
     Route: 042
  4. PREDNISOLONE (PREDNISOLONE) FORMULATION [Concomitant]
  5. DEXAMETHASONE (DEXAMETHASONE) FORMULA UNKNOWN [Concomitant]

REACTIONS (1)
  - THROMBOTIC MICROANGIOPATHY [None]
